FAERS Safety Report 16927948 (Version 1)
Quarter: 2019Q4

REPORT INFORMATION
  Report Type: Report from Study
  Country: None (occurrence: US)
  Receive Date: 20191017
  Receipt Date: 20191017
  Transmission Date: 20200122
  Serious: Yes (Hospitalization, Other)
  Sender: FDA-Public Use
  Company Number: US-ABBVIE-19K-163-2938882-00

PATIENT
  Age: 35 Year
  Sex: Female

DRUGS (3)
  1. HUMIRA [Suspect]
     Active Substance: ADALIMUMAB
     Route: 058
     Dates: start: 201803, end: 201905
  2. MARIJUANA [Concomitant]
     Active Substance: CANNABIS SATIVA SUBSP. INDICA TOP
     Indication: PRODUCT USED FOR UNKNOWN INDICATION
     Route: 065
  3. HUMIRA [Suspect]
     Active Substance: ADALIMUMAB
     Indication: HIDRADENITIS
     Dosage: PRN
     Route: 058
     Dates: start: 201801, end: 2018

REACTIONS (4)
  - Subcutaneous abscess [Not Recovered/Not Resolved]
  - Wound [Not Recovered/Not Resolved]
  - Hidradenitis [Not Recovered/Not Resolved]
  - Vaginal abscess [Unknown]

NARRATIVE: CASE EVENT DATE: 201905
